FAERS Safety Report 18097634 (Version 3)
Quarter: 2023Q4

REPORT INFORMATION
  Report Type: Spontaneous
  Country: US (occurrence: US)
  Receive Date: 20200731
  Receipt Date: 20231020
  Transmission Date: 20240110
  Serious: Yes (Other)
  Sender: FDA-Public Use
  Company Number: US-GILEAD-2020-0486797

PATIENT
  Age: 31 Year
  Sex: Female
  Weight: 157.37 kg

DRUGS (38)
  1. ATRIPLA [Suspect]
     Active Substance: EFAVIRENZ\EMTRICITABINE\TENOFOVIR DISOPROXIL FUMARATE
     Indication: HIV infection
     Dosage: UNK
     Route: 048
     Dates: start: 20130109, end: 20130416
  2. COMPLERA [Suspect]
     Active Substance: EMTRICITABINE\RILPIVIRINE HYDROCHLORIDE\TENOFOVIR DISOPROXIL FUMARATE
     Indication: HIV infection
     Dosage: UNK
     Route: 048
     Dates: start: 20130813, end: 20151110
  3. COMPLERA [Suspect]
     Active Substance: EMTRICITABINE\RILPIVIRINE HYDROCHLORIDE\TENOFOVIR DISOPROXIL FUMARATE
     Dosage: UNK
     Route: 048
     Dates: start: 20130813, end: 201512
  4. SIMVASTATIN [Concomitant]
     Active Substance: SIMVASTATIN
  5. BIKTARVY [Concomitant]
     Active Substance: BICTEGRAVIR SODIUM\EMTRICITABINE\TENOFOVIR ALAFENAMIDE FUMARATE
  6. ADVAIR HFA [Concomitant]
     Active Substance: FLUTICASONE PROPIONATE\SALMETEROL XINAFOATE
  7. AMOXICILLIN [Concomitant]
     Active Substance: AMOXICILLIN
  8. BACITRACIN [Concomitant]
     Active Substance: BACITRACIN
  9. BENZONATATE [Concomitant]
     Active Substance: BENZONATATE
  10. BUPROPION [Concomitant]
     Active Substance: BUPROPION
  11. CABERGOLINE [Concomitant]
     Active Substance: CABERGOLINE
  12. CEPHALEXIN [Concomitant]
     Active Substance: CEPHALEXIN
  13. CITALOPRAM [Concomitant]
     Active Substance: CITALOPRAM HYDROBROMIDE
  14. DIFLUNISAL [Concomitant]
     Active Substance: DIFLUNISAL
  15. DIPHENHYDRAMINE [Concomitant]
     Active Substance: DIPHENHYDRAMINE
  16. FUROSEMIDE [Concomitant]
     Active Substance: FUROSEMIDE
  17. GABAPENTIN [Concomitant]
     Active Substance: GABAPENTIN
  18. HYDROCHLOROTHIAZIDE [Concomitant]
     Active Substance: HYDROCHLOROTHIAZIDE
  19. ACETAMINOPHEN\HYDROCODONE [Concomitant]
     Active Substance: ACETAMINOPHEN\HYDROCODONE
  20. HYDROXYZINE PAMOATE [Concomitant]
     Active Substance: HYDROXYZINE PAMOATE
  21. IBUPROFEN [Concomitant]
     Active Substance: IBUPROFEN
  22. KETOPROFEN [Concomitant]
     Active Substance: KETOPROFEN
  23. LISINOPRIL [Concomitant]
     Active Substance: LISINOPRIL
  24. MELATONIN [Concomitant]
     Active Substance: MELATONIN
  25. MELOXICAM [Concomitant]
     Active Substance: MELOXICAM
  26. NAPROXEN SODIUM [Concomitant]
     Active Substance: NAPROXEN SODIUM
  27. ONDANSETRON [Concomitant]
     Active Substance: ONDANSETRON
  28. OXYCODONE AND ACETAMINOPHEN [Concomitant]
     Active Substance: ACETAMINOPHEN\OXYCODONE HYDROCHLORIDE
  29. PROCHLORPERAZINE [Concomitant]
     Active Substance: PROCHLORPERAZINE
  30. SULFAMETHOXAZOLE [Concomitant]
     Active Substance: SULFAMETHOXAZOLE
  31. VENTOLIN HFA [Concomitant]
     Active Substance: ALBUTEROL SULFATE
  32. VITAMIN D2 [Concomitant]
     Active Substance: ERGOCALCIFEROL
  33. OSELTAMIVIR [Concomitant]
     Active Substance: OSELTAMIVIR
  34. PREDNISONE [Concomitant]
     Active Substance: PREDNISONE
  35. PROVENTIL [Concomitant]
     Active Substance: ALBUTEROL
     Dosage: UNK
  36. RANITIDINE [Concomitant]
     Active Substance: RANITIDINE
  37. DOXYCYCLINE HYCLATE [Concomitant]
     Active Substance: DOXYCYCLINE HYCLATE
  38. CYCLOBENZAPRINE [Concomitant]
     Active Substance: CYCLOBENZAPRINE

REACTIONS (8)
  - Multiple fractures [Recovered/Resolved]
  - Lower limb fracture [Recovered/Resolved]
  - Osteoporosis [Not Recovered/Not Resolved]
  - Pain [Not Recovered/Not Resolved]
  - Emotional distress [Not Recovered/Not Resolved]
  - Anxiety [Not Recovered/Not Resolved]
  - Anhedonia [Not Recovered/Not Resolved]
  - Nightmare [Unknown]

NARRATIVE: CASE EVENT DATE: 20151001
